FAERS Safety Report 12225170 (Version 11)
Quarter: 2017Q3

REPORT INFORMATION
  Report Type: Spontaneous
  Country: US (occurrence: US)
  Receive Date: 20160331
  Receipt Date: 20170824
  Transmission Date: 20171127
  Serious: Yes (Hospitalization, Other)
  Sender: FDA-Public Use
  Company Number: US-PFIZER INC-2016185362

PATIENT
  Age: 70 Year
  Sex: Female
  Weight: 63.96 kg

DRUGS (1)
  1. LYRICA [Suspect]
     Active Substance: PREGABALIN
     Indication: NEUROPATHY PERIPHERAL
     Dosage: 150 MG, 3X/DAY
     Route: 048
     Dates: end: 2017

REACTIONS (6)
  - Hip fracture [Recovering/Resolving]
  - Hypoaesthesia [Not Recovered/Not Resolved]
  - Femur fracture [Recovering/Resolving]
  - Pain in extremity [Unknown]
  - Fall [Unknown]
  - Drug dose omission [Unknown]

NARRATIVE: CASE EVENT DATE: 20160820
